FAERS Safety Report 14004637 (Version 3)
Quarter: 2017Q4

REPORT INFORMATION
  Report Type: Spontaneous
  Country: US (occurrence: US)
  Receive Date: 20170922
  Receipt Date: 20171022
  Transmission Date: 20180321
  Serious: Yes (Life-Threatening, Other)
  Sender: FDA-Public Use
  Company Number: PHEH2017US030262

PATIENT
  Sex: Female

DRUGS (3)
  1. FAMCICLOVIR. [Suspect]
     Active Substance: FAMCICLOVIR
     Indication: PRODUCT USED FOR UNKNOWN INDICATION
     Dosage: UNK
     Route: 065
  2. FAMVIR [Suspect]
     Active Substance: FAMCICLOVIR
     Indication: PRODUCT USED FOR UNKNOWN INDICATION
     Dosage: UNK
     Route: 065
  3. ZINC. [Concomitant]
     Active Substance: ZINC
     Indication: PRODUCT USED FOR UNKNOWN INDICATION
     Dosage: UNK
     Route: 065

REACTIONS (11)
  - Encephalitis viral [Unknown]
  - Immunodeficiency [Unknown]
  - Emotional distress [Unknown]
  - Speech disorder [Unknown]
  - Visual impairment [Unknown]
  - Drug ineffective [Unknown]
  - Crying [Unknown]
  - Cough [Unknown]
  - Quality of life decreased [Unknown]
  - Malaise [Unknown]
  - Feeling abnormal [Unknown]
